FAERS Safety Report 8595292 (Version 3)
Quarter: 2013Q2

REPORT INFORMATION
  Report Type: Spontaneous
  Country: JP (occurrence: JP)
  Receive Date: 20120604
  Receipt Date: 20130410
  Transmission Date: 20140414
  Serious: Yes (Other)
  Sender: FDA-Public Use
  Company Number: JP-B.I. PHARMACEUTICALS,INC./RIDGEFIELD-2012-EU-02921GD

PATIENT
  Sex: Male

DRUGS (2)
  1. BI-SIFROL [Suspect]
     Indication: PARKINSON^S DISEASE
     Dosage: 0.5 MG
  2. BI-SIFROL [Suspect]
     Dosage: 1 MG
     Dates: end: 201104

REACTIONS (6)
  - Nightmare [Recovered/Resolved]
  - Rapid eye movements sleep abnormal [Recovered/Resolved]
  - Aggression [Recovered/Resolved]
  - Injury [Unknown]
  - Posture abnormal [Unknown]
  - Back pain [Unknown]
